FAERS Safety Report 6275163-6 (Version None)
Quarter: 2009Q3

REPORT INFORMATION
  Report Type: 
  Country: None (occurrence: None)
  Receive Date: 20090721
  Receipt Date: 20090716
  Transmission Date: 20100115
  Serious: Yes (Other)
  Sender: FDA-Public Use
  Company Number: US-RB-018005-09

PATIENT
  Sex: Male
  Weight: 101.7 kg

DRUGS (2)
  1. SUBUTEX [Suspect]
     Route: 060
     Dates: start: 20090713, end: 20090714
  2. SUBOXONE [Suspect]
     Route: 060
     Dates: start: 20090715

REACTIONS (11)
  - AGITATION [None]
  - ASTHENIA [None]
  - DECREASED APPETITE [None]
  - DIARRHOEA [None]
  - FEELING OF BODY TEMPERATURE CHANGE [None]
  - HALLUCINATION [None]
  - HEADACHE [None]
  - HYPERHIDROSIS [None]
  - LETHARGY [None]
  - MUSCLE TWITCHING [None]
  - VOMITING [None]
